FAERS Safety Report 17495059 (Version 1)
Quarter: 2020Q1

REPORT INFORMATION
  Report Type: Spontaneous
  Country: GB (occurrence: GB)
  Receive Date: 20200303
  Receipt Date: 20200303
  Transmission Date: 20200409
  Serious: Yes (Disabling)
  Sender: FDA-Public Use
  Company Number: GB-MYLANLABS-2019M1092591

PATIENT
  Age: 75 Year
  Sex: Female
  Weight: 70.8 kg

DRUGS (9)
  1. COLCHICINE. [Concomitant]
     Active Substance: COLCHICINE
     Dosage: 1000 MICROGRAM, QD (AS PROPHYLAXIS WITH ALLOPURINOL)
     Dates: start: 20190225
  2. SIMVASTATIN. [Suspect]
     Active Substance: SIMVASTATIN
     Indication: PRODUCT USED FOR UNKNOWN INDICATION
     Dosage: 40 MILLIGRAM
     Dates: start: 20140805, end: 20190405
  3. ALLOPURINOL. [Concomitant]
     Active Substance: ALLOPURINOL
     Dosage: 100 MILLIGRAM, QD
     Dates: start: 20190225
  4. PHOLCODINE [Concomitant]
     Active Substance: PHOLCODINE
     Dosage: 5 MILLILITER (5MG/5ML AS DIRECTED)
     Dates: start: 20190130
  5. OMEPRAZOLE. [Concomitant]
     Active Substance: OMEPRAZOLE
     Dosage: 20 MILLIGRAM, QD (AS DIRECTED.)
     Dates: start: 20190211
  6. PHOLCODINE [Concomitant]
     Active Substance: PHOLCODINE
     Dosage: 5 MILLILITER, PRN (5MG/5ML AS DIRECTED)
     Dates: start: 20190130
  7. PROPRANOLOL [Concomitant]
     Active Substance: PROPRANOLOL HYDROCHLORIDE
     Indication: ANXIETY
     Dosage: 80 MILLIGRAM, QD
     Dates: start: 20190314
  8. COLCHICINE. [Concomitant]
     Active Substance: COLCHICINE
     Indication: GOUT
     Dosage: 1500 MICROGRAM, QD (COURSE CAN BE REPEATED AFTER 3 DAYS IF NEEDED.)
     Dates: start: 20190220
  9. METFORMIN [Concomitant]
     Active Substance: METFORMIN HYDROCHLORIDE
     Dosage: 2000 MILLIGRAM, QD
     Dates: start: 20190304

REACTIONS (2)
  - Pain [Recovered/Resolved]
  - Blood creatine phosphokinase increased [Recovered/Resolved]

NARRATIVE: CASE EVENT DATE: 20190405
